FAERS Safety Report 6104797-4 (Version None)
Quarter: 2009Q1

REPORT INFORMATION
  Report Type: 
  Country: None (occurrence: None)
  Receive Date: 20090306
  Receipt Date: 20090226
  Transmission Date: 20090719
  Serious: Yes (Other)
  Sender: FDA-Public Use
  Company Number: PHBS2009TR00935

PATIENT
  Age: 16 Year
  Sex: Male

DRUGS (12)
  1. CARBAMAZEPINE [Suspect]
     Indication: PAIN
     Dosage: 200 MG, BID
  2. TRAMADOL HCL [Concomitant]
     Indication: PAIN
     Dosage: 50 MG, QD
  3. FLUOXETINE [Concomitant]
     Indication: IRRITABILITY
     Dosage: 20 MG, UNK
  4. FLUOXETINE [Concomitant]
     Indication: ANXIETY
  5. FLUOXETINE [Concomitant]
     Indication: DEPRESSION
  6. ALPRAZOLAM [Concomitant]
     Indication: ANXIETY
     Dosage: 0.5MG, 1/2 TABLET, BID
     Route: 048
  7. ALPRAZOLAM [Concomitant]
     Indication: IRRITABILITY
     Dosage: 1.5MG, 0.5 DF, TID
     Route: 048
  8. ALPRAZOLAM [Concomitant]
     Indication: DEPRESSION
  9. AMITRIPTYLINE [Concomitant]
     Dosage: 10 MG, QD
  10. UNISOM [Concomitant]
     Indication: INSOMNIA
     Dosage: 25 MG, QD
  11. INSULIN [Suspect]
     Indication: DIABETES MELLITUS
     Dosage: 6 IU, UNK
  12. FENTANYL [Concomitant]
     Dosage: 25 UG, QH
     Route: 062

REACTIONS (3)
  - ALLODYNIA [None]
  - SKIN MACERATION [None]
  - WOUND [None]
